FAERS Safety Report 5990109-3 (Version None)
Quarter: 2008Q4

REPORT INFORMATION
  Report Type: 
  Country: None (occurrence: None)
  Receive Date: 20081211
  Receipt Date: 20081209
  Transmission Date: 20090506
  Serious: Yes (Hospitalization)
  Sender: FDA-Public Use
  Company Number: JP-JNJFOC-20081202393

PATIENT
  Age: 37 Year
  Sex: Female

DRUGS (1)
  1. MINOCYCLINE HCL [Suspect]
     Indication: NASOPHARYNGITIS
     Route: 048

REACTIONS (2)
  - EOSINOPHILIC PNEUMONIA ACUTE [None]
  - NEUTROPHILIA [None]
